FAERS Safety Report 7459274-5 (Version None)
Quarter: 2011Q2

REPORT INFORMATION
  Report Type: 
  Country: None (occurrence: None)
  Receive Date: 20110504
  Receipt Date: 20110504
  Transmission Date: 20111010
  Serious: No
  Sender: FDA-Public Use
  Company Number: None

PATIENT
  Sex: Female
  Weight: 67.2 kg

DRUGS (1)
  1. PACLITAXEL [Suspect]
     Indication: BREAST CANCER
     Dosage: 132MG WEEKLY INTRAVENOUS 041
     Route: 042
     Dates: start: 20110217, end: 20110303

REACTIONS (3)
  - ERYTHEMA [None]
  - DYSPNOEA [None]
  - INFUSION RELATED REACTION [None]
